FAERS Safety Report 17975737 (Version 1)
Quarter: 2020Q3

REPORT INFORMATION
  Report Type: Spontaneous
  Country: RU (occurrence: RU)
  Receive Date: 20200702
  Receipt Date: 20200702
  Transmission Date: 20201103
  Serious: Yes (Death)
  Sender: FDA-Public Use
  Company Number: RU-EISAI MEDICAL RESEARCH-EC-2020-076813

PATIENT
  Age: 32 Year
  Sex: Female
  Weight: 85 kg

DRUGS (1)
  1. LENVIMA [Suspect]
     Active Substance: LENVATINIB
     Indication: RENAL CANCER
     Route: 048
     Dates: start: 20190901, end: 20200615

REACTIONS (2)
  - Multiple organ dysfunction syndrome [Fatal]
  - Anaemia [Fatal]

NARRATIVE: CASE EVENT DATE: 20200615
